FAERS Safety Report 9348241 (Version 2)
Quarter: 2013Q2

REPORT INFORMATION
  Report Type: Spontaneous
  Country: US (occurrence: US)
  Receive Date: 20130614
  Receipt Date: 20130619
  Transmission Date: 20140414
  Serious: Yes (Hospitalization, Other)
  Sender: FDA-Public Use
  Company Number: US-009507513-1306USA003472

PATIENT
  Sex: Female
  Weight: 74.38 kg

DRUGS (2)
  1. FOSAMAX [Suspect]
     Dosage: 70 MG, UNK
     Route: 048
  2. ALENDRONATE SODIUM [Suspect]
     Dosage: 70 MG, UNK

REACTIONS (24)
  - Femur fracture [Unknown]
  - Intramedullary rod insertion [Unknown]
  - Joint arthroplasty [Unknown]
  - Knee arthroplasty [Unknown]
  - Deafness [Unknown]
  - Tinnitus [Unknown]
  - Musculoskeletal stiffness [Unknown]
  - Mammogram abnormal [Unknown]
  - Benign breast neoplasm [Recovering/Resolving]
  - Atrophy [Unknown]
  - Vaginal prolapse [Unknown]
  - Osteopenia [Unknown]
  - Osteoarthritis [Unknown]
  - Osteoporosis [Unknown]
  - Hypertonic bladder [Unknown]
  - Hypertension [Unknown]
  - Memory impairment [Unknown]
  - Tonsillectomy [Unknown]
  - Cardiomegaly [Unknown]
  - Oestrogen deficiency [Unknown]
  - Back pain [Unknown]
  - Back pain [Unknown]
  - Joint swelling [Unknown]
  - Dyspepsia [Unknown]
